FAERS Safety Report 8803396 (Version 1)
Quarter: 2012Q4

REPORT INFORMATION
  Report Type: 
  Country: US (occurrence: US)
  Receive Date: 20120924
  Receipt Date: 20120924
  Transmission Date: 20130627
  Serious: Yes (Death, Hospitalization, Other)
  Sender: FDA-Public Use
  Company Number: US-ROCHE-1104096

PATIENT
  Age: 57 Year
  Sex: Female

DRUGS (4)
  1. AVASTIN [Suspect]
     Indication: MALIGNANT RESPIRATORY TRACT NEOPLASM
     Route: 065
     Dates: start: 20050801
  2. AVASTIN [Suspect]
     Indication: BREAST CANCER FEMALE
  3. GEMZAR [Concomitant]
  4. ALBUTEROL INHALER [Concomitant]

REACTIONS (4)
  - Death [Fatal]
  - Disease progression [Unknown]
  - Pleural effusion [Unknown]
  - Dyspnoea [Unknown]
